FAERS Safety Report 12948790 (Version 3)
Quarter: 2016Q4

REPORT INFORMATION
  Report Type: Spontaneous
  Country: US (occurrence: US)
  Receive Date: 20161116
  Receipt Date: 20161228
  Transmission Date: 20170207
  Serious: No
  Sender: FDA-Public Use
  Company Number: US-PFIZER INC-2016040596

PATIENT
  Age: 65 Year
  Sex: Male
  Weight: 104.7 kg

DRUGS (5)
  1. XALKORI [Suspect]
     Active Substance: CRIZOTINIB
     Dosage: 250 MG, 2X/DAY (30 DAY SUPPLY)
     Route: 048
     Dates: start: 20160120
  2. LIPITOR [Concomitant]
     Active Substance: ATORVASTATIN CALCIUM
     Dosage: UNK UNK, (40) DAILY
  3. AVAPRO [Concomitant]
     Active Substance: IRBESARTAN
     Dosage: UNK UNK,  (300) DAILY
  4. ASA [Concomitant]
     Active Substance: ASPIRIN
     Dosage: UNK UNK, (81 (UNIT NOT REPORTED)) DAILY
  5. XALKORI [Suspect]
     Active Substance: CRIZOTINIB
     Indication: SOFT TISSUE SARCOMA
     Dosage: 500 MG, 1X/DAY (2 IN 1 D)
     Route: 048
     Dates: start: 201502

REACTIONS (3)
  - Nausea [Unknown]
  - Neoplasm progression [Recovered/Resolved]
  - Product use issue [Unknown]
